FAERS Safety Report 24080647 (Version 1)
Quarter: 2024Q3

REPORT INFORMATION
  Report Type: Spontaneous
  Country: US (occurrence: US)
  Receive Date: 20240711
  Receipt Date: 20240711
  Transmission Date: 20241016
  Serious: No
  Sender: INCYTE
  Company Number: US-INCYTE CORPORATION-2024IN006416

PATIENT

DRUGS (1)
  1. OPZELURA [Suspect]
     Active Substance: RUXOLITINIB PHOSPHATE
     Indication: Eczema
     Dosage: UNK
     Route: 061

REACTIONS (4)
  - Swelling [Not Recovered/Not Resolved]
  - Erection increased [Not Recovered/Not Resolved]
  - Dysuria [Not Recovered/Not Resolved]
  - Chest discomfort [Not Recovered/Not Resolved]
